FAERS Safety Report 9142497 (Version 1)
Quarter: 2013Q1

REPORT INFORMATION
  Report Type: Spontaneous
  Country: US (occurrence: US)
  Receive Date: 20130306
  Receipt Date: 20130306
  Transmission Date: 20140127
  Serious: No
  Sender: FDA-Public Use
  Company Number: US-BIOGENIDEC-2013BI019925

PATIENT
  Sex: Male

DRUGS (4)
  1. TYSABRI [Suspect]
     Indication: MULTIPLE SCLEROSIS
     Route: 042
     Dates: start: 20080901
  2. TYSABRI [Suspect]
     Indication: MULTIPLE SCLEROSIS
     Route: 042
  3. HALDOL [Concomitant]
     Indication: PREMEDICATION
  4. NOVOCAINE [Concomitant]
     Indication: TOOTH EXTRACTION

REACTIONS (7)
  - Nephrolithiasis [Recovered/Resolved]
  - Tooth extraction [Recovered/Resolved]
  - Procedural pain [Not Recovered/Not Resolved]
  - Post procedural complication [Not Recovered/Not Resolved]
  - Memory impairment [Not Recovered/Not Resolved]
  - Phobia [Recovered/Resolved]
  - Reading disorder [Unknown]
